FAERS Safety Report 5960073-1 (Version None)
Quarter: 2008Q4

REPORT INFORMATION
  Report Type: 
  Country: None (occurrence: None)
  Receive Date: 20081119
  Receipt Date: 20081119
  Transmission Date: 20090506
  Serious: No
  Sender: FDA-Public Use
  Company Number: None

PATIENT
  Age: 48 Year
  Sex: Female
  Weight: 40 kg

DRUGS (10)
  1. WARFARIN SODIUM [Suspect]
     Indication: THROMBOSIS PROPHYLAXIS
     Dosage: 5 MG PO QD
     Route: 048
     Dates: start: 20080923
  2. FUROSEMIDE [Concomitant]
  3. LANSOPRAZOLE [Concomitant]
  4. LEVOTHYROXINE SODIUM [Concomitant]
  5. DOCUSATE [Concomitant]
  6. MEGESTROL ACETATE [Concomitant]
  7. FLOLAN [Concomitant]
  8. ALBUTEROL [Concomitant]
  9. IPRATROPIUM BROMIDE [Concomitant]
  10. DIATRIZOATE MEGLUMINE [Concomitant]

REACTIONS (4)
  - ABDOMINAL DISTENSION [None]
  - HAEMOPTYSIS [None]
  - HYPOXIA [None]
  - INTERNATIONAL NORMALISED RATIO INCREASED [None]
